FAERS Safety Report 17228921 (Version 1)
Quarter: 2020Q1

REPORT INFORMATION
  Report Type: Spontaneous
  Country: US (occurrence: US)
  Receive Date: 20200103
  Receipt Date: 20200103
  Transmission Date: 20200409
  Serious: Yes (Hospitalization, Other)
  Sender: FDA-Public Use
  Company Number: US-ASTRAZENECA-2018SF14358

PATIENT
  Age: 21938 Day
  Sex: Female
  Weight: 103.4 kg

DRUGS (143)
  1. PROTONIX [Suspect]
     Active Substance: PANTOPRAZOLE SODIUM
     Indication: GASTROOESOPHAGEAL REFLUX DISEASE
     Dosage: 40.0MG UNKNOWN
     Route: 065
     Dates: start: 20181026
  2. CLOPIDOGREL [Concomitant]
     Active Substance: CLOPIDOGREL BISULFATE
     Indication: CEREBROVASCULAR ACCIDENT
     Dates: start: 2013, end: 2017
  3. CYTRA [Concomitant]
     Indication: GOUT
     Dates: start: 2013, end: 2016
  4. PERMETHRIN. [Concomitant]
     Active Substance: PERMETHRIN
     Indication: ACARODERMATITIS
     Dates: start: 2013
  5. PERMETHRIN. [Concomitant]
     Active Substance: PERMETHRIN
     Indication: ACARODERMATITIS
     Dates: start: 2016, end: 2017
  6. ULTRAM [Concomitant]
     Active Substance: TRAMADOL HYDROCHLORIDE
     Indication: PAIN
     Dates: start: 2014, end: 2019
  7. MEVACOR [Concomitant]
     Active Substance: LOVASTATIN
     Indication: BLOOD CHOLESTEROL
     Dates: start: 2014, end: 2019
  8. BACTRIM [Concomitant]
     Active Substance: SULFAMETHOXAZOLE\TRIMETHOPRIM
     Indication: URINARY TRACT INFECTION
     Dates: start: 2014
  9. ZITHROMAX [Concomitant]
     Active Substance: AZITHROMYCIN DIHYDRATE
     Indication: SKIN INFECTION
     Dates: start: 2015
  10. HUMULIN NOS [Concomitant]
     Active Substance: INSULIN HUMAN
     Indication: DIABETES MELLITUS
     Dates: start: 2015, end: 2019
  11. COZAAR [Concomitant]
     Active Substance: LOSARTAN POTASSIUM
     Indication: HYPERTENSION
     Dates: start: 2016, end: 2019
  12. TRIAMCINOLONE [Concomitant]
     Active Substance: TRIAMCINOLONE
     Indication: DERMATITIS
     Dates: start: 2016, end: 2017
  13. DUREZOL OPHTHALMIC [Concomitant]
     Indication: EYE PAIN
     Dates: start: 2016
  14. OFLOXACIN. [Concomitant]
     Active Substance: OFLOXACIN
     Indication: CONJUNCTIVAL DISORDER
     Dates: start: 2016
  15. PROVENTIL [Concomitant]
     Active Substance: ALBUTEROL
     Indication: ASTHMA
     Dates: start: 2018, end: 2019
  16. PREDNISONE. [Concomitant]
     Active Substance: PREDNISONE
     Indication: ARTHRITIS
     Dates: start: 2018
  17. COLACE [Concomitant]
     Active Substance: DOCUSATE SODIUM
     Indication: CONSTIPATION
     Dates: start: 2019
  18. CORTISPORIN [Concomitant]
     Active Substance: BACITRACIN ZINC\HYDROCORTISONE\NEOMYCIN SULFATE\POLYMYXIN B SULFATE
     Indication: EAR INFECTION
     Dates: start: 2019
  19. TUMS [Concomitant]
     Active Substance: CALCIUM CARBONATE
  20. NORVASC [Concomitant]
     Active Substance: AMLODIPINE BESYLATE
  21. LORCET [Concomitant]
     Active Substance: ACETAMINOPHEN\HYDROCODONE BITARTRATE
  22. UROCIT [Concomitant]
  23. TAVIST ALLERGY [Concomitant]
     Active Substance: CLEMASTINE FUMARATE
  24. ANUSOL NOS [Concomitant]
     Active Substance: BALSAM PERU\BENZYL BENZOATE\BISMUTH HYDROXIDE\BISMUTH SUBGALLATE\HYDROCORTISONE ACETATE\ZINC OXIDE
  25. ATUSS [Concomitant]
     Active Substance: CHLORPHENIRAMINE MALEATE\DEXTROMETHORPHAN\PHENYLEPHRINE
  26. CARAFATE [Concomitant]
     Active Substance: SUCRALFATE
  27. ERY TAB [Concomitant]
  28. PROTONIX [Suspect]
     Active Substance: PANTOPRAZOLE SODIUM
     Indication: GASTROOESOPHAGEAL REFLUX DISEASE
     Dosage: 40.0MG UNKNOWN
     Route: 065
     Dates: start: 20060101, end: 20180101
  29. PREVACID [Suspect]
     Active Substance: LANSOPRAZOLE
     Route: 065
  30. CIPROFLOXACIN. [Concomitant]
     Active Substance: CIPROFLOXACIN
     Indication: BACTERIAL INFECTION
     Dates: start: 2013, end: 2017
  31. BACTRIM [Concomitant]
     Active Substance: SULFAMETHOXAZOLE\TRIMETHOPRIM
     Indication: BRONCHITIS
     Dates: start: 2014
  32. NEURONTIN [Concomitant]
     Active Substance: GABAPENTIN
     Indication: NEURALGIA
     Dates: start: 2015, end: 2018
  33. OFLOXACIN. [Concomitant]
     Active Substance: OFLOXACIN
     Indication: EYE INFECTION
     Dates: start: 2016
  34. CETIRIZINE [Concomitant]
     Active Substance: CETIRIZINE HYDROCHLORIDE
     Indication: RHINORRHOEA
     Dates: start: 2018
  35. MONUROL [Concomitant]
     Active Substance: FOSFOMYCIN TROMETHAMINE
     Indication: CYSTITIS
     Dates: start: 2018
  36. MONUROL [Concomitant]
     Active Substance: FOSFOMYCIN TROMETHAMINE
     Indication: URINARY TRACT INFECTION
     Dates: start: 2018
  37. ZOCOR [Concomitant]
     Active Substance: SIMVASTATIN
  38. VENTOLIN [Concomitant]
     Active Substance: ALBUTEROL SULFATE
  39. STUARTNATAL [Concomitant]
  40. AMCILL [Concomitant]
     Active Substance: AMPICILLIN TRIHYDRATE
  41. INFLAMASE [Concomitant]
  42. TENEX [Concomitant]
     Active Substance: GUANFACINE HYDROCHLORIDE
  43. ACCUPRIL [Concomitant]
     Active Substance: QUINAPRIL HYDROCHLORIDE
  44. DONNATAL [Concomitant]
     Active Substance: ATROPINE SULFATE\HYOSCYAMINE SULFATE\PHENOBARBITAL\SCOPOLAMINE HYDROBROMIDE
  45. ZOFRAN [Concomitant]
     Active Substance: ONDANSETRON HYDROCHLORIDE
  46. PRILOSEC [Suspect]
     Active Substance: OMEPRAZOLE MAGNESIUM
     Indication: GASTROOESOPHAGEAL REFLUX DISEASE
     Route: 048
     Dates: start: 20060101, end: 20180101
  47. ZITHROMAX [Concomitant]
     Active Substance: AZITHROMYCIN DIHYDRATE
     Indication: RESPIRATORY TRACT INFECTION
     Dates: start: 2015
  48. LOPRESSOR [Concomitant]
     Active Substance: METOPROLOL TARTRATE
     Indication: HYPERTENSION
     Dates: start: 2015, end: 2019
  49. LEVAQUIN [Concomitant]
     Active Substance: LEVOFLOXACIN
     Indication: SINUSITIS
     Dates: start: 2015
  50. LEVAQUIN [Concomitant]
     Active Substance: LEVOFLOXACIN
     Indication: SINUSITIS
     Dates: start: 2018
  51. TESSALON [Concomitant]
     Active Substance: BENZONATATE
     Indication: PNEUMONIA
     Dates: start: 2018
  52. ASPIRIN. [Concomitant]
     Active Substance: ASPIRIN
     Indication: BLOOD VISCOSITY ABNORMAL
     Dates: start: 2015
  53. GENTAMICIN. [Concomitant]
     Active Substance: GENTAMICIN
  54. AXID CAP [Concomitant]
  55. DURA VENT [Concomitant]
  56. PROTONIX [Suspect]
     Active Substance: PANTOPRAZOLE SODIUM
     Indication: GASTROOESOPHAGEAL REFLUX DISEASE
     Dosage: 40.0MG UNKNOWN
     Route: 065
     Dates: start: 20190930
  57. CIPROFLOXACIN. [Concomitant]
     Active Substance: CIPROFLOXACIN
     Indication: SKIN INFECTION
     Dates: start: 2013, end: 2017
  58. DIFLUCAN [Concomitant]
     Active Substance: FLUCONAZOLE
     Indication: FUNGAL INFECTION
     Dates: start: 2013
  59. HYDRALAZINE [Concomitant]
     Active Substance: HYDRALAZINE HYDROCHLORIDE
     Indication: HYPERTENSION
     Dates: start: 2013, end: 2016
  60. MOTRIN [Concomitant]
     Active Substance: IBUPROFEN
     Indication: ARTHRITIS
     Dates: start: 2014
  61. HYZAAR [Concomitant]
     Active Substance: HYDROCHLOROTHIAZIDE\LOSARTAN POTASSIUM
     Indication: HYPERTENSION
     Dates: start: 2015, end: 2016
  62. LOPRESSOR [Concomitant]
     Active Substance: METOPROLOL TARTRATE
     Indication: ANGINA PECTORIS
     Dates: start: 2015, end: 2019
  63. NITROSTAT [Concomitant]
     Active Substance: NITROGLYCERIN
     Indication: CORONARY ARTERY DISEASE
     Dates: start: 2016, end: 2017
  64. FLOMAX [Concomitant]
     Active Substance: TAMSULOSIN HYDROCHLORIDE
     Indication: CALCULUS BLADDER
     Dates: start: 2016, end: 2019
  65. HYDROCODONE [Concomitant]
     Active Substance: HYDROCODONE
     Indication: PAIN
     Dates: start: 2017
  66. GLUCOPHAGE [Concomitant]
     Active Substance: METFORMIN HYDROCHLORIDE
     Indication: BLOOD GLUCOSE FLUCTUATION
     Dates: start: 2017, end: 2019
  67. BENTYL [Concomitant]
     Active Substance: DICYCLOMINE HYDROCHLORIDE
     Indication: IRRITABLE BOWEL SYNDROME
     Dates: start: 2018
  68. PRACTOCREAM [Concomitant]
  69. FIORINAL [Concomitant]
     Active Substance: ASPIRIN\BUTALBITAL\CAFFEINE
  70. MYCOLOG [Concomitant]
     Active Substance: GRAMICIDIN\NEOMYCIN SULFATE\NYSTATIN\TRIAMCINOLONE ACETONIDE
  71. LOTENSIN [Concomitant]
     Active Substance: BENAZEPRIL HYDROCHLORIDE
  72. GUIATUSS [Concomitant]
     Active Substance: GUAIFENESIN
  73. PROTONIX [Suspect]
     Active Substance: PANTOPRAZOLE SODIUM
     Indication: GASTROOESOPHAGEAL REFLUX DISEASE
     Dosage: DELAYED RESPONSE40.0MG UNKNOWN
     Route: 065
     Dates: start: 2015
  74. HYDROCHLOROTHIZIDE [Concomitant]
     Active Substance: HYDROCHLOROTHIAZIDE
     Indication: HYPERTENSION
     Dates: start: 2013, end: 2019
  75. LORATADINE. [Concomitant]
     Active Substance: LORATADINE
     Indication: NASAL DISCOMFORT
     Dates: start: 2014
  76. BACTRIM [Concomitant]
     Active Substance: SULFAMETHOXAZOLE\TRIMETHOPRIM
     Indication: BRONCHITIS
     Dates: start: 2016, end: 2018
  77. ZITHROMAX [Concomitant]
     Active Substance: AZITHROMYCIN DIHYDRATE
     Indication: SKIN INFECTION
     Dates: start: 2018
  78. HYZAAR [Concomitant]
     Active Substance: HYDROCHLOROTHIAZIDE\LOSARTAN POTASSIUM
     Indication: CARDIOMEGALY
     Dates: start: 2015, end: 2016
  79. RENA-VITE [Concomitant]
     Active Substance: ASCORBIC ACID\BIOTIN\CALCIUM PANTOTHENATE\CYANOCOBALAMIN\FOLIC ACID\NIACINAMIDE\PYRIDOXINE HYDROCHLORIDE\RIBOFLAVIN\THIAMINE MONONITRATE
     Indication: HYPOVITAMINOSIS
     Dates: start: 2015, end: 2017
  80. NITROSTAT [Concomitant]
     Active Substance: NITROGLYCERIN
     Indication: CHEST PAIN
     Dates: start: 2016, end: 2017
  81. PYRIDIUM [Concomitant]
     Active Substance: PHENAZOPYRIDINE
     Indication: URINARY TRACT INFECTION
     Dates: start: 2016, end: 2017
  82. CETIRIZINE [Concomitant]
     Active Substance: CETIRIZINE HYDROCHLORIDE
     Indication: EYE PRURITUS
     Dates: start: 2018
  83. COLACE [Concomitant]
     Active Substance: DOCUSATE SODIUM
     Indication: PAIN
     Dates: start: 2019
  84. VITAMIN D [Concomitant]
     Active Substance: VITAMIN D NOS
     Indication: HYPOVITAMINOSIS
     Dates: start: 2015
  85. DOXYCYCLINE. [Concomitant]
     Active Substance: DOXYCYCLINE
  86. TERAZOL [Concomitant]
     Active Substance: TERCONAZOLE
  87. LEVSIN [Concomitant]
     Active Substance: HYOSCYAMINE SULFATE
  88. CELEXA [Concomitant]
     Active Substance: CITALOPRAM HYDROBROMIDE
     Indication: DEPRESSION
     Dates: start: 2013, end: 2019
  89. CYTRA [Concomitant]
     Indication: NEPHROLITHIASIS
     Dates: start: 2013, end: 2016
  90. NAPROSYN [Concomitant]
     Active Substance: NAPROXEN
     Indication: TENDONITIS
     Dates: start: 2014
  91. LOMOTIL [Concomitant]
     Active Substance: ATROPINE SULFATE\DIPHENOXYLATE HYDROCHLORIDE
     Indication: DIARRHOEA
     Dates: start: 2014
  92. ZITHROMAX [Concomitant]
     Active Substance: AZITHROMYCIN DIHYDRATE
     Indication: RESPIRATORY TRACT INFECTION
     Dates: start: 2018
  93. MOTRIN [Concomitant]
     Active Substance: IBUPROFEN
     Indication: INFLAMMATION
     Dates: start: 2014
  94. CLEOCIN [Concomitant]
     Active Substance: CLINDAMYCIN PHOSPHATE
     Indication: BACTERIAL VAGINOSIS
     Dates: start: 2015
  95. MAGNESIUM OXIDE. [Concomitant]
     Active Substance: MAGNESIUM OXIDE
     Indication: DYSPEPSIA
     Dates: start: 2017, end: 2019
  96. FERROUS SULFATE. [Concomitant]
     Active Substance: FERROUS SULFATE
     Indication: ANAEMIA
     Dates: start: 2017, end: 2019
  97. VICTOZA [Concomitant]
     Active Substance: LIRAGLUTIDE
     Indication: BLOOD GLUCOSE FLUCTUATION
     Dates: start: 2018
  98. TESSALON [Concomitant]
     Active Substance: BENZONATATE
     Indication: BRONCHITIS
     Dates: start: 2018
  99. AUGMENTIN [Concomitant]
     Active Substance: AMOXICILLIN\CLAVULANATE POTASSIUM
     Indication: SINUSITIS
     Dates: start: 2018
  100. NIZORAL [Concomitant]
     Active Substance: KETOCONAZOLE
     Indication: TINEA PEDIS
     Dates: start: 2018
  101. TORADOL [Concomitant]
     Active Substance: KETOROLAC TROMETHAMINE
     Indication: INFLAMMATION
     Dates: start: 2019
  102. ZANTAC [Concomitant]
     Active Substance: RANITIDINE HYDROCHLORIDE
     Dosage: 150
     Dates: start: 1992, end: 2006
  103. FLONASE [Concomitant]
     Active Substance: FLUTICASONE PROPIONATE
  104. PLAVIX [Concomitant]
     Active Substance: CLOPIDOGREL BISULFATE
  105. PHENERGAN [Concomitant]
     Active Substance: PROMETHAZINE HYDROCHLORIDE
  106. HYTRIN [Concomitant]
     Active Substance: TERAZOSIN HYDROCHLORIDE
  107. DARVOCET [Concomitant]
     Active Substance: ACETAMINOPHEN\PROPOXYPHENE HYDROCHLORIDE
  108. K TAB [Concomitant]
  109. PRILOSEC [Suspect]
     Active Substance: OMEPRAZOLE MAGNESIUM
     Indication: GASTROOESOPHAGEAL REFLUX DISEASE
     Route: 048
     Dates: start: 20071116
  110. PROZAC [Concomitant]
     Active Substance: FLUOXETINE HYDROCHLORIDE
     Indication: OBSESSIVE-COMPULSIVE DISORDER
     Dates: start: 2013
  111. BACTRIM [Concomitant]
     Active Substance: SULFAMETHOXAZOLE\TRIMETHOPRIM
     Indication: URINARY TRACT INFECTION
     Dates: start: 2016, end: 2018
  112. LEVAQUIN [Concomitant]
     Active Substance: LEVOFLOXACIN
     Indication: URINARY TRACT INFECTION
     Dates: start: 2015
  113. LEVAQUIN [Concomitant]
     Active Substance: LEVOFLOXACIN
     Indication: URINARY TRACT INFECTION
     Dates: start: 2018
  114. VITAMIN D3 [Concomitant]
     Active Substance: CHOLECALCIFEROL
     Indication: HYPOVITAMINOSIS
     Dates: start: 2015
  115. TRIAMCINOLONE [Concomitant]
     Active Substance: TRIAMCINOLONE
     Indication: ECZEMA
     Dates: start: 2016, end: 2017
  116. DUREZOL OPHTHALMIC [Concomitant]
     Indication: INFLAMMATION
     Dates: start: 2016
  117. ZYRTEC [Concomitant]
     Active Substance: CETIRIZINE HYDROCHLORIDE
     Indication: MULTIPLE ALLERGIES
     Dates: start: 2017
  118. ZYRTEC [Concomitant]
     Active Substance: CETIRIZINE HYDROCHLORIDE
     Indication: SNEEZING
     Dates: start: 2017
  119. MACROBID [Concomitant]
     Active Substance: NITROFURANTOIN\NITROFURANTOIN MONOHYDRATE
     Indication: URINARY TRACT INFECTION
     Dates: start: 2017, end: 2018
  120. PREDNISONE. [Concomitant]
     Active Substance: PREDNISONE
     Indication: LUPUS CYSTITIS
     Dates: start: 2018
  121. PERCOCET [Concomitant]
     Active Substance: ACETAMINOPHEN\OXYCODONE HYDROCHLORIDE
     Indication: PAIN
     Dates: start: 2019
  122. LOTRISONE [Concomitant]
     Active Substance: BETAMETHASONE DIPROPIONATE\CLOTRIMAZOLE
     Indication: FUNGAL INFECTION
     Dates: start: 2018
  123. BACTROBAN [Concomitant]
     Active Substance: MUPIROCIN\MUPIROCIN CALCIUM
  124. ZOVIRAX [Concomitant]
     Active Substance: ACYCLOVIR
  125. CAPOTEN [Concomitant]
     Active Substance: CAPTOPRIL
  126. ZOSYN [Concomitant]
     Active Substance: PIPERACILLIN SODIUM\TAZOBACTAM SODIUM
  127. CLOPIDOGREL [Concomitant]
     Active Substance: CLOPIDOGREL BISULFATE
     Indication: MYOCARDIAL INFARCTION
     Dates: start: 2013, end: 2017
  128. PROZAC [Concomitant]
     Active Substance: FLUOXETINE HYDROCHLORIDE
     Indication: DEPRESSION
     Dates: start: 2013
  129. HYDROCHLOROTHIZIDE [Concomitant]
     Active Substance: HYDROCHLOROTHIAZIDE
     Indication: CARDIAC FAILURE CONGESTIVE
     Dates: start: 2013, end: 2019
  130. NAPROSYN [Concomitant]
     Active Substance: NAPROXEN
     Indication: HEADACHE
     Dates: start: 2014
  131. LORATADINE. [Concomitant]
     Active Substance: LORATADINE
     Indication: PYREXIA
     Dates: start: 2014
  132. NEPHRO VITE RX [Concomitant]
     Active Substance: ASCORBIC ACID\BIOTIN\CALCIUM PANTOTHENATE\CYANOCOBALAMIN\FOLIC ACID\NIACINAMIDE\PYRIDOXINE HYDROCHLORIDE\RIBOFLAVIN\THIAMINE MONONITRATE
     Indication: HYPOVITAMINOSIS
     Dates: start: 2015
  133. KETOROLAC OPHTHALMIC [Concomitant]
     Indication: EYE PRURITUS
     Dates: start: 2016
  134. KETOROLAC OPHTHALMIC [Concomitant]
     Indication: EYE IRRITATION
     Dates: start: 2016
  135. MAGNESIUM OXIDE. [Concomitant]
     Active Substance: MAGNESIUM OXIDE
     Indication: CONSTIPATION
     Dates: start: 2017, end: 2019
  136. BYDUREON [Concomitant]
     Active Substance: EXENATIDE
     Indication: BLOOD INSULIN
     Dates: start: 2017
  137. PROVENTIL [Concomitant]
     Active Substance: ALBUTEROL
     Indication: DYSPNOEA
     Dates: start: 2018, end: 2019
  138. AUGMENTIN [Concomitant]
     Active Substance: AMOXICILLIN\CLAVULANATE POTASSIUM
     Indication: PNEUMONIA
     Dates: start: 2018
  139. NIZORAL [Concomitant]
     Active Substance: KETOCONAZOLE
     Indication: FUNGAL INFECTION
     Dates: start: 2018
  140. TORADOL [Concomitant]
     Active Substance: KETOROLAC TROMETHAMINE
     Indication: PAIN
     Dates: start: 2019
  141. KEFLEX [Concomitant]
     Active Substance: CEPHALEXIN
  142. NOROXIN [Concomitant]
     Active Substance: NORFLOXACIN
  143. SODIUM CITRATE. [Concomitant]
     Active Substance: SODIUM CITRATE

REACTIONS (4)
  - Chronic kidney disease [Not Recovered/Not Resolved]
  - Renal failure [Not Recovered/Not Resolved]
  - Hyperparathyroidism secondary [Unknown]
  - End stage renal disease [Unknown]

NARRATIVE: CASE EVENT DATE: 20150723
